FAERS Safety Report 8065307-8 (Version None)
Quarter: 2012Q1

REPORT INFORMATION
  Report Type: 
  Country: None (occurrence: None)
  Receive Date: 20120124
  Receipt Date: 20120112
  Transmission Date: 20120608
  Serious: Yes (Hospitalization)
  Sender: FDA-Public Use
  Company Number: JP-BRACCO-005539

PATIENT
  Age: 67 Year
  Sex: Female

DRUGS (2)
  1. PROHANCE [Suspect]
     Indication: NEOPLASM MALIGNANT
     Route: 042
     Dates: start: 20111226, end: 20111226
  2. PROHANCE [Suspect]
     Indication: DIAGNOSTIC PROCEDURE
     Route: 042
     Dates: start: 20111226, end: 20111226

REACTIONS (1)
  - SHOCK [None]
